FAERS Safety Report 5855990-7 (Version None)
Quarter: 2008Q3

REPORT INFORMATION
  Report Type: 
  Country: None (occurrence: None)
  Receive Date: 20080825
  Receipt Date: 20080814
  Transmission Date: 20090109
  Serious: Yes (Hospitalization)
  Sender: FDA-Public Use
  Company Number: US-JNJFOC-20080803375

PATIENT
  Sex: Female
  Weight: 32.5 kg

DRUGS (5)
  1. REMICADE [Suspect]
     Route: 042
  2. REMICADE [Suspect]
     Indication: INFLAMMATORY BOWEL DISEASE
     Route: 042
  3. PREDNISONE TAB [Concomitant]
  4. CIPRO [Concomitant]
  5. L0SEC [Concomitant]

REACTIONS (1)
  - INFLAMMATORY BOWEL DISEASE [None]
